FAERS Safety Report 18573909 (Version 2)
Quarter: 2020Q4

REPORT INFORMATION
  Report Type: Spontaneous
  Country: LV (occurrence: LV)
  Receive Date: 20201203
  Receipt Date: 20201215
  Transmission Date: 20210114
  Serious: Yes (Hospitalization, Other)
  Sender: FDA-Public Use
  Company Number: LV-NOVOPROD-770210

PATIENT
  Age: 65 Year
  Sex: Female
  Weight: 90 kg

DRUGS (1)
  1. XULTOPHY 100/3.6 [Suspect]
     Active Substance: INSULIN DEGLUDEC\LIRAGLUTIDE
     Indication: TYPE 2 DIABETES MELLITUS
     Dosage: 14 - 16 DOSE STEPS
     Route: 058
     Dates: start: 201911

REACTIONS (2)
  - Necrosis [Unknown]
  - COVID-19 [Unknown]

NARRATIVE: CASE EVENT DATE: 202011
